FAERS Safety Report 4877960-8 (Version None)
Quarter: 2006Q1

REPORT INFORMATION
  Report Type: 
  Country: None (occurrence: None)
  Receive Date: 20060110
  Receipt Date: 20051219
  Transmission Date: 20060701
  Serious: Yes (Hospitalization)
  Sender: FDA-Public Use
  Company Number: 220661

PATIENT
  Age: 68 Year
  Sex: Female
  Weight: 69 kg

DRUGS (5)
  1. AVASTIN [Suspect]
     Indication: COLON CANCER
     Dosage: 350 MG, Q3W, INTRAVENOUS
     Route: 042
     Dates: start: 20051213
  2. OXALIPLATIN (OXALIPLATIN) [Suspect]
     Indication: COLON CANCER
     Dosage: 140 MG, Q3M, INTRAVENOUS
     Route: 042
     Dates: start: 20051213
  3. FLUOROURACIL [Suspect]
     Indication: COLON CANCER
     Dosage: SEE IMAGE
     Dates: start: 20051213
  4. FLUOROURACIL [Suspect]
     Indication: COLON CANCER
     Dosage: SEE IMAGE
     Dates: start: 20051213
  5. LEUCOVORIN CALCIUM [Suspect]
     Indication: COLON CANCER
     Dosage: 200 MG, Q2W, INTRAVENOUS
     Route: 042

REACTIONS (6)
  - DEHYDRATION [None]
  - DIARRHOEA [None]
  - MALAISE [None]
  - NAUSEA [None]
  - VOMITING [None]
  - WHITE BLOOD CELL COUNT DECREASED [None]
